FAERS Safety Report 9900579 (Version 3)
Quarter: 2014Q2

REPORT INFORMATION
  Report Type: Report from Study
  Country: US (occurrence: US)
  Receive Date: 20140217
  Receipt Date: 20140612
  Transmission Date: 20141212
  Serious: Yes (Death)
  Sender: FDA-Public Use
  Company Number: US-BIOGENIDEC-2014BI013085

PATIENT
  Age: 52 Year
  Sex: Female

DRUGS (6)
  1. TECFIDERA [Suspect]
     Indication: MULTIPLE SCLEROSIS
     Route: 048
     Dates: start: 20131015, end: 20131021
  2. TECFIDERA [Suspect]
     Indication: MULTIPLE SCLEROSIS
     Route: 048
     Dates: start: 20131022, end: 20140205
  3. METHADONE HCL [Concomitant]
  4. HYDROMORPHONE HCL [Concomitant]
  5. CYMBALTA [Concomitant]
  6. METOPROLOL TARTRATE [Concomitant]

REACTIONS (2)
  - Completed suicide [Fatal]
  - Pain [Unknown]
